FAERS Safety Report 16541439 (Version 1)
Quarter: 2019Q3

REPORT INFORMATION
  Report Type: Report from Study
  Country: AU (occurrence: AU)
  Receive Date: 20190708
  Receipt Date: 20190708
  Transmission Date: 20191004
  Serious: Yes (Other)
  Sender: FDA-Public Use
  Company Number: AU-EMD SERONO-9034789

PATIENT
  Age: 53 Year
  Sex: Female

DRUGS (2)
  1. MAVENCLAD [Suspect]
     Active Substance: CLADRIBINE
     Indication: SECONDARY PROGRESSIVE MULTIPLE SCLEROSIS
     Dosage: FIRST WEEK TREATMENT: 2 TABLETS ON DAYS 1,2 AND 3 THEN 1 TABLET FOR DAYS 4 AND 5
     Route: 048
     Dates: start: 20180702, end: 20180706
  2. MAVENCLAD [Suspect]
     Active Substance: CLADRIBINE
     Dosage: SECOND WEEK TREATMENT: TOOK 7 TABLETS
     Route: 048
     Dates: start: 20180806, end: 20180810

REACTIONS (8)
  - Influenza [Not Recovered/Not Resolved]
  - Lower respiratory tract infection [Not Recovered/Not Resolved]
  - Blood blister [Unknown]
  - Nausea [Recovered/Resolved]
  - Increased tendency to bruise [Unknown]
  - Rash pruritic [Not Recovered/Not Resolved]
  - Feeling abnormal [Unknown]
  - Off label use [Unknown]

NARRATIVE: CASE EVENT DATE: 20180702
